FAERS Safety Report 12464798 (Version 1)
Quarter: 2016Q2

REPORT INFORMATION
  Report Type: Spontaneous
  Country: DE (occurrence: DE)
  Receive Date: 20160614
  Receipt Date: 20160614
  Transmission Date: 20160815
  Serious: Yes (Other)
  Sender: FDA-Public Use
  Company Number: DE-PFIZER INC-2016294266

PATIENT
  Age: 72 Year
  Sex: Female

DRUGS (1)
  1. METHOTREXATE (METHOTREXATE SODIUM) [Suspect]
     Active Substance: METHOTREXATE SODIUM
     Indication: POLYARTHRITIS
     Dosage: 15 MG, 1X/DAY

REACTIONS (1)
  - Myocardial infarction [Unknown]
